FAERS Safety Report 19881571 (Version 1)
Quarter: 2021Q3

REPORT INFORMATION
  Report Type: Report from Study
  Country: AU (occurrence: AU)
  Receive Date: 20210924
  Receipt Date: 20210924
  Transmission Date: 20211014
  Serious: Yes (Other)
  Sender: FDA-Public Use
  Company Number: AU-PFIZER INC-2013227954

PATIENT
  Age: 8 Year

DRUGS (6)
  1. CYCLOPHOSPHAMIDE. [Suspect]
     Active Substance: CYCLOPHOSPHAMIDE
     Indication: SIDEROBLASTIC ANAEMIA
     Dosage: UNK
  2. PREDNISOLONE. [Suspect]
     Active Substance: PREDNISOLONE
     Indication: CHRONIC GRAFT VERSUS HOST DISEASE
  3. THIOTEPA. [Suspect]
     Active Substance: THIOTEPA
     Indication: SIDEROBLASTIC ANAEMIA
     Dosage: UNK
  4. PREDNISOLONE. [Suspect]
     Active Substance: PREDNISOLONE
     Indication: SIDEROBLASTIC ANAEMIA
     Dosage: UNK
  5. BUSULPHAN [Suspect]
     Active Substance: BUSULFAN
     Indication: SIDEROBLASTIC ANAEMIA
     Dosage: UNK
  6. ANTILYMPHOCYTE IMMUNOGLOBULINS [Suspect]
     Active Substance: THYMOCYTE IMMUNE GLOBULIN NOS
     Indication: SIDEROBLASTIC ANAEMIA
     Dosage: UNK

REACTIONS (1)
  - Osteonecrosis [Not Recovered/Not Resolved]
